FAERS Safety Report 7565253-X (Version None)
Quarter: 2011Q2

REPORT INFORMATION
  Report Type: 
  Country: None (occurrence: None)
  Receive Date: 20110622
  Receipt Date: 20110615
  Transmission Date: 20111010
  Serious: Yes (Death, Life-Threatening, Hospitalization, Other)
  Sender: FDA-Public Use
  Company Number: JP-CELGENEUS-087-21880-11031931

PATIENT
  Sex: Female

DRUGS (22)
  1. LIPITOR [Concomitant]
     Dosage: 10 MILLIGRAM
     Route: 048
     Dates: start: 20110210, end: 20110506
  2. RED BLOOD CELLS [Concomitant]
     Dosage: 2 UNITS
     Route: 041
     Dates: start: 20110218, end: 20110218
  3. ASPARA-CA [Concomitant]
     Dosage: 600 MILLIGRAM
     Route: 048
     Dates: start: 20110210, end: 20110506
  4. LENDORMIN D [Concomitant]
     Indication: PROPHYLAXIS
     Dosage: .25 MILLIGRAM
     Route: 048
     Dates: start: 20110210, end: 20110506
  5. CARVEDILOL [Concomitant]
     Dosage: 5 MILLIGRAM
     Route: 048
     Dates: start: 20110413, end: 20110419
  6. DEXAMETHASONE [Concomitant]
     Indication: MULTIPLE MYELOMA
     Dosage: 40 MILLIGRAM
     Route: 048
     Dates: start: 20110210, end: 20110303
  7. DEXAMETHASONE [Concomitant]
     Dosage: 40 MILLIGRAM
     Route: 048
     Dates: start: 20110305, end: 20110407
  8. LASIX [Concomitant]
     Dosage: 40 MILLIGRAM
     Route: 048
     Dates: start: 20110413, end: 20110419
  9. GASLON N [Concomitant]
     Indication: PROPHYLAXIS
     Dosage: 2 MILLIGRAM
     Route: 048
     Dates: start: 20110210, end: 20110506
  10. REVLIMID [Suspect]
     Indication: MULTIPLE MYELOMA
     Dosage: 5 MILLIGRAM
     Route: 048
     Dates: start: 20110209, end: 20110220
  11. LASIX [Concomitant]
     Dosage: 10 MILLIGRAM
     Route: 048
     Dates: start: 20110210
  12. ASPIRIN [Concomitant]
     Indication: PROPHYLAXIS
     Dosage: 100 MILLIGRAM
     Route: 048
     Dates: start: 20110210
  13. PROTECADIN [Concomitant]
     Indication: PROPHYLAXIS
     Dosage: 20 MILLIGRAM
     Route: 048
     Dates: start: 20110210, end: 20110506
  14. LENIMEC [Concomitant]
     Dosage: 1.25 MILLIGRAM
     Route: 048
     Dates: start: 20110413, end: 20110419
  15. SENNOSIDE [Concomitant]
     Indication: PROPHYLAXIS
     Dosage: 24 MILLIGRAM
     Route: 048
     Dates: start: 20110210, end: 20110506
  16. REVLIMID [Suspect]
     Dosage: 5 MILLIGRAM
     Route: 048
     Dates: start: 20110305, end: 20110325
  17. REVLIMID [Suspect]
     Dosage: 5 MILLIGRAM
     Route: 048
     Dates: start: 20110414, end: 20110418
  18. DIFLUCAN [Concomitant]
     Indication: PROPHYLAXIS
     Dosage: 100 MILLIGRAM
     Route: 048
     Dates: start: 20110210, end: 20110506
  19. SULFAMETHOXAZOLE [Concomitant]
     Indication: PROPHYLAXIS
     Dosage: 1 TABLET
     Route: 048
     Dates: start: 20110210, end: 20110506
  20. MAGMITT [Concomitant]
     Indication: PROPHYLAXIS
     Dosage: 1.5 GRAM
     Route: 048
     Dates: start: 20110210, end: 20110506
  21. ALDACTONE [Concomitant]
     Dosage: 25 MILLIGRAM
     Route: 048
     Dates: start: 20110413, end: 20110419
  22. PREDOPA [Concomitant]
     Dosage: 600 MILLIGRAM
     Route: 041
     Dates: start: 20110502, end: 20110506

REACTIONS (4)
  - CARDIAC FAILURE [None]
  - NEUTROPENIA [None]
  - ACUTE MYELOID LEUKAEMIA [None]
  - THROMBOCYTOPENIA [None]
